FAERS Safety Report 9539648 (Version 2)
Quarter: 2013Q4

REPORT INFORMATION
  Report Type: Spontaneous
  Country: US (occurrence: US)
  Receive Date: 20130920
  Receipt Date: 20131014
  Transmission Date: 20140711
  Serious: Yes (Hospitalization)
  Sender: FDA-Public Use
  Company Number: PHEH2013US019519

PATIENT
  Sex: Male

DRUGS (8)
  1. MYFORTIC [Suspect]
     Indication: RENAL TRANSPLANT
     Dosage: 360 MG (2 TABLETS), PER DAY
     Route: 048
  2. PROGRAF [Concomitant]
     Indication: TRANSPLANT
     Dosage: UNK UKN, UNK
  3. PREDNISONE [Concomitant]
     Dosage: UNK UKN, UNK
  4. DILTIAZEM [Concomitant]
     Dosage: UNK UKN, UNK
  5. LISINOPRIL [Concomitant]
     Dosage: UNK UKN, UNK
  6. PRAVASTATIN [Concomitant]
     Dosage: UNK UKN, UNK
  7. CLONIDINE [Concomitant]
     Dosage: UNK UKN, UNK
  8. CELLCEPT [Concomitant]
     Dosage: UNK
     Route: 042

REACTIONS (1)
  - Dysphagia [Unknown]
